FAERS Safety Report 25950764 (Version 1)
Quarter: 2025Q4

REPORT INFORMATION
  Report Type: Spontaneous
  Country: GB (occurrence: GB)
  Receive Date: 20251023
  Receipt Date: 20251023
  Transmission Date: 20260118
  Serious: Yes (Other)
  Sender: TEVA
  Company Number: GB-TEVA-VS-3383561

PATIENT
  Age: 45 Year
  Sex: Female

DRUGS (7)
  1. QUININE [Suspect]
     Active Substance: QUININE
     Indication: Overdose
     Route: 065
  2. DULOXETINE [Concomitant]
     Active Substance: DULOXETINE
     Indication: Product used for unknown indication
     Route: 065
  3. RABEPRAZOLE [Concomitant]
     Active Substance: RABEPRAZOLE
     Indication: Product used for unknown indication
     Route: 065
  4. ACETAMINOPHEN\CODEINE PHOSPHATE [Concomitant]
     Active Substance: ACETAMINOPHEN\CODEINE PHOSPHATE
     Indication: Product used for unknown indication
     Route: 065
  5. SUMATRIPTAN [Concomitant]
     Active Substance: SUMATRIPTAN
     Indication: Product used for unknown indication
     Route: 065
  6. DOMPERIDONE [Concomitant]
     Active Substance: DOMPERIDONE
     Indication: Product used for unknown indication
     Route: 065
  7. PIZOTYLINE [Concomitant]
     Active Substance: PIZOTYLINE
     Indication: Product used for unknown indication
     Route: 065

REACTIONS (3)
  - Overdose [Unknown]
  - Toxicity to various agents [Unknown]
  - Retinal toxicity [Unknown]
